FAERS Safety Report 6086733-2 (Version None)
Quarter: 2009Q1

REPORT INFORMATION
  Report Type: 
  Country: None (occurrence: None)
  Receive Date: 20090223
  Receipt Date: 20090211
  Transmission Date: 20090719
  Serious: Yes (Other)
  Sender: FDA-Public Use
  Company Number: IE-PFIZER INC-2009168779

PATIENT

DRUGS (6)
  1. LYRICA [Suspect]
     Indication: EPILEPSY
     Dosage: 25 MG, UNK
  2. DIAZEPAM [Suspect]
     Indication: EPILEPSY
     Dosage: 5 MG, UNK
  3. BACLOFEN [Concomitant]
  4. LANSOPRAZOLE [Concomitant]
     Dosage: 30 MG, UNK
  5. CLEXANE [Concomitant]
  6. PHENYTOIN [Concomitant]

REACTIONS (2)
  - ERYTHEMA [None]
  - RASH [None]
